FAERS Safety Report 8642787 (Version 3)
Quarter: 2012Q4

REPORT INFORMATION
  Report Type: Spontaneous
  Country: US (occurrence: None)
  Receive Date: 20120615
  Receipt Date: 20120822
  Transmission Date: 20130627
  Serious: Yes (Hospitalization, Other)
  Sender: FDA-Public Use
  Company Number: 2012P1037477

PATIENT
  Age: 48 Year
  Sex: Female

DRUGS (18)
  1. METHYLPREDNISOLONE [Suspect]
     Indication: COMPLICATIONS OF TRANSPLANTED KIDNEY
     Dosage: QD; PO
     Route: 048
  2. UNSPECIFIED INGREDIENT [Suspect]
  3. ALLOPURINOL [Concomitant]
  4. SNYTHROID [Concomitant]
  5. PANTOPROAZOLE [Concomitant]
  6. CALCITRIOL [Concomitant]
  7. PAROXETINE [Concomitant]
  8. SODIUM CHLORIDE NASAL SPRAY [Concomitant]
  9. NYSTATIN [Concomitant]
  10. METOPROLOL SUCCINATE [Concomitant]
  11. INSULIN GLARGINE [Concomitant]
  12. FOLIC ACID [Concomitant]
  13. VITAMIN B COMPLEX [Concomitant]
  14. VITAMIN C [Concomitant]
  15. MAGNESIUM OXIDE [Concomitant]
  16. GABAPENTIN [Concomitant]
  17. LORAZEPAM [Concomitant]
  18. OXYCODONE HYDROCHLORIDE [Concomitant]

REACTIONS (18)
  - Abdominal pain [None]
  - Hypotension [None]
  - Complications of transplanted kidney [None]
  - Haemodialysis [None]
  - Nausea [None]
  - Vomiting [None]
  - Diarrhoea [None]
  - Pulmonary embolism [None]
  - Peritonitis [None]
  - Peritoneal haemorrhage [None]
  - Septic shock [None]
  - Abscess intestinal [None]
  - Fungal test positive [None]
  - Bacterial test positive [None]
  - Renal cyst [None]
  - Cystitis [None]
  - Coeliac artery stenosis [None]
  - Device related infection [None]
